FAERS Safety Report 17794683 (Version 4)
Quarter: 2020Q3

REPORT INFORMATION
  Report Type: Report from Study
  Country: US (occurrence: US)
  Receive Date: 20200515
  Receipt Date: 20200720
  Transmission Date: 20201102
  Serious: Yes (Hospitalization)
  Sender: FDA-Public Use
  Company Number: US-ACTELION-A-US2019-192155

PATIENT
  Sex: Male
  Weight: 65.31 kg

DRUGS (4)
  1. TYVASO [Concomitant]
     Active Substance: TREPROSTINIL
     Dosage: UNK, QID
  2. ELIQUIS [Concomitant]
     Active Substance: APIXABAN
  3. OPSUMIT [Suspect]
     Active Substance: MACITENTAN
     Indication: PULMONARY ARTERIAL HYPERTENSION
     Dosage: 10 MG, QD
     Route: 048
  4. TADALAFIL. [Concomitant]
     Active Substance: TADALAFIL

REACTIONS (13)
  - Joint swelling [Unknown]
  - Walking aid user [Unknown]
  - Aspiration [Unknown]
  - Hospitalisation [Unknown]
  - Therapy non-responder [Not Recovered/Not Resolved]
  - Dyspnoea [Unknown]
  - Balance disorder [Unknown]
  - Hypotension [Not Recovered/Not Resolved]
  - Pneumonia aspiration [Unknown]
  - Chronic obstructive pulmonary disease [Unknown]
  - Blood pressure systolic decreased [Unknown]
  - Haemoglobin decreased [Unknown]
  - Malaise [Unknown]
